FAERS Safety Report 5840517-6 (Version None)
Quarter: 2008Q3

REPORT INFORMATION
  Report Type: 
  Country: None (occurrence: None)
  Receive Date: 20080811
  Receipt Date: 20080725
  Transmission Date: 20090109
  Serious: Yes (Hospitalization)
  Sender: FDA-Public Use
  Company Number: GB-ROCHE-492412

PATIENT
  Sex: Female
  Weight: 63 kg

DRUGS (4)
  1. PEGASYS [Suspect]
     Indication: HEPATITIS C
     Route: 058
     Dates: start: 20070104, end: 20070315
  2. RIBAVIRIN [Suspect]
     Indication: HEPATITIS C
     Dosage: REPORTED AS (400 + 600MG, DAILY)
     Route: 048
     Dates: start: 20070104
  3. RIBAVIRIN [Suspect]
     Route: 048
     Dates: end: 20070315
  4. VX-950 [Suspect]
     Indication: HEPATITIS C
     Route: 048
     Dates: start: 20070104, end: 20070315

REACTIONS (2)
  - RASH ERYTHEMATOUS [None]
  - SUBCUTANEOUS ABSCESS [None]
